FAERS Safety Report 24533492 (Version 1)
Quarter: 2024Q4

REPORT INFORMATION
  Report Type: Spontaneous
  Country: JP (occurrence: JP)
  Receive Date: 20241022
  Receipt Date: 20241022
  Transmission Date: 20250115
  Serious: Yes (Other)
  Sender: PFIZER
  Company Number: JP-PFIZER INC-PV202400134707

PATIENT
  Sex: Female

DRUGS (5)
  1. ENBREL [Suspect]
     Active Substance: ETANERCEPT
     Dosage: UNK
     Dates: start: 202405, end: 202409
  2. ENBREL [Suspect]
     Active Substance: ETANERCEPT
     Dosage: UNK, ONCE IN 2 WEEKS
     Dates: start: 202409
  3. ENBREL [Suspect]
     Active Substance: ETANERCEPT
     Dosage: UNK, EVERY 4 DAYS, FOR ABOUT 3 WEEKS
     Dates: start: 2024
  4. RHEUMATREX [Suspect]
     Active Substance: METHOTREXATE SODIUM
     Dosage: 1 MG, DAILY
     Route: 048
     Dates: start: 202405, end: 202409
  5. RHEUMATREX [Suspect]
     Active Substance: METHOTREXATE SODIUM
     Dosage: UNK, ONCE IN 2 WEEKS
     Route: 048
     Dates: start: 202409

REACTIONS (3)
  - Rheumatoid arthritis [Recovered/Resolved]
  - Pain [Unknown]
  - Off label use [Unknown]

NARRATIVE: CASE EVENT DATE: 20240101
